FAERS Safety Report 5947298-6 (Version None)
Quarter: 2008Q4

REPORT INFORMATION
  Report Type: 
  Country: None (occurrence: None)
  Receive Date: 20081110
  Receipt Date: 20081104
  Transmission Date: 20090506
  Serious: Yes (Hospitalization, Disabling)
  Sender: FDA-Public Use
  Company Number: CA-KINGPHARMUSA00001-K200801242

PATIENT

DRUGS (1)
  1. EPIPEN [Suspect]
     Dosage: .3 MG, SINGLE
     Dates: start: 20080912, end: 20080912

REACTIONS (4)
  - ACCIDENTAL EXPOSURE [None]
  - INFECTION [None]
  - OEDEMA PERIPHERAL [None]
  - PHYSICAL DISABILITY [None]
